FAERS Safety Report 6672290-6 (Version None)
Quarter: 2010Q2

REPORT INFORMATION
  Report Type: 
  Country: None (occurrence: None)
  Receive Date: 20100408
  Receipt Date: 20100330
  Transmission Date: 20101027
  Serious: Yes (Other)
  Sender: FDA-Public Use
  Company Number: US-RB-006431-10

PATIENT
  Sex: Female

DRUGS (1)
  1. MUCINEX D [Suspect]
     Dosage: TOOK 3 TABLETS IN 24 HOURS
     Route: 048
     Dates: start: 20100301

REACTIONS (5)
  - ACCIDENTAL OVERDOSE [None]
  - BLOOD PRESSURE INCREASED [None]
  - DIZZINESS [None]
  - EXPIRED DRUG ADMINISTERED [None]
  - HEADACHE [None]
